FAERS Safety Report 10084545 (Version 1)
Quarter: 2014Q2

REPORT INFORMATION
  Report Type: Spontaneous
  Country: US (occurrence: US)
  Receive Date: 20140417
  Receipt Date: 20140417
  Transmission Date: 20141212
  Serious: No
  Sender: FDA-Public Use
  Company Number: US-PFIZER INC-2014107669

PATIENT
  Sex: Male

DRUGS (2)
  1. SOLU-MEDROL [Suspect]
     Dosage: UNK
  2. PREDNISONE [Suspect]
     Dosage: UNK

REACTIONS (3)
  - Nervousness [Unknown]
  - Fatigue [Unknown]
  - Myalgia [Unknown]
